FAERS Safety Report 24046816 (Version 2)
Quarter: 2024Q3

REPORT INFORMATION
  Report Type: Spontaneous
  Country: US (occurrence: US)
  Receive Date: 20240703
  Receipt Date: 20240725
  Transmission Date: 20241017
  Serious: Yes (Disabling, Other)
  Sender: ALEXION PHARMACEUTICALS
  Company Number: US-AstraZeneca-CH-00654649A

PATIENT

DRUGS (1)
  1. SOLIRIS [Suspect]
     Active Substance: ECULIZUMAB
     Indication: Neuromyelitis optica spectrum disorder
     Dosage: UNK
     Route: 042

REACTIONS (4)
  - Neuromyelitis optica spectrum disorder [Recovered/Resolved with Sequelae]
  - Optic neuritis [Unknown]
  - Pain [Unknown]
  - Muscle spasms [Unknown]
